FAERS Safety Report 7232046-2 (Version None)
Quarter: 2011Q1

REPORT INFORMATION
  Report Type: 
  Country: None (occurrence: None)
  Receive Date: 20110118
  Receipt Date: 20110113
  Transmission Date: 20110831
  Serious: No
  Sender: FDA-Public Use
  Company Number: BR-ELI_LILLY_AND_COMPANY-BR201012003755

PATIENT
  Sex: Female
  Weight: 63 kg

DRUGS (3)
  1. BYETTA [Suspect]
     Indication: TYPE 2 DIABETES MELLITUS
     Dosage: 10 UG, DAILY (1/D)
     Route: 058
     Dates: start: 20101201
  2. GLUCOFORMIN [Concomitant]
     Dosage: 800 MG, 2/D
  3. INSULIN NPH                        /01223208/ [Concomitant]
     Indication: DIABETES MELLITUS
     Dosage: 20 IU, EACH EVENING
     Route: 058

REACTIONS (9)
  - CHILLS [None]
  - FREQUENT BOWEL MOVEMENTS [None]
  - TREMOR [None]
  - OFF LABEL USE [None]
  - FEELING ABNORMAL [None]
  - ASTHENIA [None]
  - NAUSEA [None]
  - PALLOR [None]
  - VOMITING [None]
